FAERS Safety Report 7334315-4 (Version None)
Quarter: 2011Q1

REPORT INFORMATION
  Report Type: 
  Country: None (occurrence: None)
  Receive Date: 20110307
  Receipt Date: 20110223
  Transmission Date: 20110831
  Serious: Yes (Other)
  Sender: FDA-Public Use
  Company Number: JP-JNJFOC-20110300864

PATIENT
  Age: 67 Year
  Sex: Female

DRUGS (5)
  1. ITRACONAZOLE [Suspect]
     Route: 048
  2. DEMETHYLCHLORTETRACYCLINE [Concomitant]
     Route: 065
  3. ITRACONAZOLE [Suspect]
     Indication: PRODUCT USED FOR UNKNOWN INDICATION
     Route: 048
  4. FUROSEMIDE [Concomitant]
     Route: 065
  5. SPIRONOLACTONE [Concomitant]
     Route: 065

REACTIONS (2)
  - CHOLESTATIC LIVER INJURY [None]
  - LIVER FUNCTION TEST ABNORMAL [None]
